FAERS Safety Report 25049838 (Version 1)
Quarter: 2025Q1

REPORT INFORMATION
  Report Type: Spontaneous
  Country: IT (occurrence: IT)
  Receive Date: 20250307
  Receipt Date: 20250307
  Transmission Date: 20250409
  Serious: Yes (Death)
  Sender: RANBAXY
  Company Number: IT-SUN PHARMACEUTICAL INDUSTRIES LTD-2025R1-497700

PATIENT
  Age: 81 Year
  Sex: Female

DRUGS (1)
  1. CLONAZEPAM [Suspect]
     Active Substance: CLONAZEPAM
     Indication: Posterior cortical atrophy
     Dosage: 0.5 MILLIGRAM, BID
     Route: 048

REACTIONS (2)
  - Sedation complication [Fatal]
  - Disease recurrence [Fatal]
